FAERS Safety Report 7958133-9 (Version None)
Quarter: 2011Q4

REPORT INFORMATION
  Report Type: 
  Country: None (occurrence: None)
  Receive Date: 20111205
  Receipt Date: 20111011
  Transmission Date: 20120403
  Serious: Yes (Death)
  Sender: FDA-Public Use
  Company Number: JP-ASTRAZENECA-2011SE60330

PATIENT
  Age: 72 Year
  Sex: Female

DRUGS (3)
  1. EPIRUBICIN HYDROCHLORIDE [Suspect]
     Dosage: 4 COURSES
     Route: 042
     Dates: start: 20080501, end: 20080801
  2. ARIMIDEX [Suspect]
     Indication: BREAST CANCER
     Route: 048
     Dates: start: 20081101, end: 20090101
  3. CYCLOPHOSPHAMIDE [Suspect]
     Dosage: 4 COURSES
     Route: 042
     Dates: start: 20080501, end: 20080801

REACTIONS (3)
  - LUNG CANCER METASTATIC [None]
  - HAEMORRHAGE SUBCUTANEOUS [None]
  - ACUTE MYELOID LEUKAEMIA [None]
